FAERS Safety Report 7213604-8 (Version None)
Quarter: 2010Q4

REPORT INFORMATION
  Report Type: 
  Country: None (occurrence: None)
  Receive Date: 20101126
  Receipt Date: 20080717
  Transmission Date: 20110411
  Serious: Yes (Hospitalization, Other)
  Sender: FDA-Public Use
  Company Number: CIP07001811

PATIENT
  Age: 59 Year
  Sex: Female
  Weight: 44.4 kg

DRUGS (29)
  1. ACTONEL [Suspect]
     Dosage: 35 MG ONCE WEEKLY, ORAL
     Route: 048
     Dates: start: 20040901, end: 20070101
  2. FOSAMAX [Suspect]
     Indication: OSTEOPOROSIS
     Dosage: 20 MG DAILY, ORAL
     Route: 048
     Dates: start: 19970801, end: 20040101
  3. MOBIC [Concomitant]
  4. AMITRIPTYLINE HYDROCHLORIDE [Concomitant]
  5. LIPITOR [Concomitant]
  6. BACTRIUM DS (TRIMETHOPRIM, SULFAMETHOXAZOLE) [Concomitant]
  7. PREMAIRN /00073001/ (ESTROGENS CONJUGATED) [Concomitant]
  8. PREVACID [Concomitant]
  9. PLAVIX [Concomitant]
  10. ZIAC /01166101/ (HYDROCHLOROTHIAZIDE, BISOPROLOL FUMARATE) [Concomitant]
  11. PERCOCET /00446701/ (PARACETAMOL, OXYCODONE HYDROCHLORIDE, OXYCODONE T [Concomitant]
  12. COLACE (DOCUSATE SODIUM) [Concomitant]
  13. SONATA /01454001/ (ZALEPLON) [Concomitant]
  14. IMITREX /01044801/ (SUMATRIPTAN) [Concomitant]
  15. NEXIUM [Concomitant]
  16. CELEBREX [Concomitant]
  17. MAXAIR [Concomitant]
  18. ASPIRIN [Concomitant]
  19. HYDROCHLOROTHIAZIDE [Concomitant]
  20. CALTRATE /00108001/ (CALCIUM CARBONATE) [Concomitant]
  21. FUROSEMIDE (FUROSEMIDE) [Concomitant]
  22. NASACORT [Concomitant]
  23. PAXIL [Concomitant]
  24. XANAX [Concomitant]
  25. AMBIEN CR [Concomitant]
  26. LIDODERM (LIDOCAINE), 5% [Concomitant]
  27. PREDNISONE TAB [Concomitant]
  28. NITROFURANTOIN MONOHYDRATE/MACROCRYSTALS (NITROFURANTOIN MONOHYDRATE/M [Concomitant]
  29. HYDROCODONE W/APAP (HYDROCODONE, PARACETAMOL) [Concomitant]

REACTIONS (26)
  - ASTHENIA [None]
  - BONE DENSITY DECREASED [None]
  - BONE FRAGMENTATION [None]
  - BREATH ODOUR [None]
  - CONFUSIONAL STATE [None]
  - DECREASED APPETITE [None]
  - DEHYDRATION [None]
  - ERYTHEMA [None]
  - GINGIVAL INFECTION [None]
  - HYPOAESTHESIA FACIAL [None]
  - HYPOPHAGIA [None]
  - IMPAIRED HEALING [None]
  - JAW DISORDER [None]
  - JAW FRACTURE [None]
  - NAUSEA [None]
  - ORAL CAVITY FISTULA [None]
  - OSTEOMYELITIS [None]
  - OSTEONECROSIS OF JAW [None]
  - PAIN IN JAW [None]
  - SCAR [None]
  - SKIN ODOUR ABNORMAL [None]
  - STREPTOCOCCAL ABSCESS [None]
  - SWELLING [None]
  - TOOTH ABSCESS [None]
  - WEIGHT DECREASED [None]
  - WOUND SECRETION [None]
